FAERS Safety Report 19463669 (Version 3)
Quarter: 2021Q3

REPORT INFORMATION
  Report Type: Spontaneous
  Country: US (occurrence: US)
  Receive Date: 20210625
  Receipt Date: 20210723
  Transmission Date: 20211014
  Serious: Yes (Other)
  Sender: FDA-Public Use
  Company Number: US-PFIZER INC-2021693374

PATIENT
  Age: 63 Year
  Sex: Female

DRUGS (3)
  1. ESTRING [Suspect]
     Active Substance: ESTRADIOL
     Dosage: UNK, EVERY 90 DAYS
     Route: 067
     Dates: start: 20210604
  2. ESTRING [Suspect]
     Active Substance: ESTRADIOL
     Indication: VULVOVAGINAL DRYNESS
     Dosage: UNK, EVERY 90 DAYS
     Route: 067
     Dates: start: 201910
  3. ESTRING [Suspect]
     Active Substance: ESTRADIOL
     Dosage: UNK, EVERY 90 DAYS
     Dates: start: 20210305, end: 20210604

REACTIONS (6)
  - Pain [Unknown]
  - Device delivery system issue [Unknown]
  - Infection [Unknown]
  - Drug ineffective [Unknown]
  - Discomfort [Unknown]
  - Incorrect dose administered by device [Unknown]

NARRATIVE: CASE EVENT DATE: 20210305
